FAERS Safety Report 23842178 (Version 1)
Quarter: 2024Q2

REPORT INFORMATION
  Report Type: Spontaneous
  Country: SG (occurrence: SG)
  Receive Date: 20240510
  Receipt Date: 20240510
  Transmission Date: 20240715
  Serious: Yes (Hospitalization, Other)
  Sender: FDA-Public Use
  Company Number: SG-ASTELLAS-2024US013514

PATIENT
  Age: 45 Year
  Sex: Female

DRUGS (6)
  1. GILTERITINIB [Suspect]
     Active Substance: GILTERITINIB
     Indication: Salvage therapy
     Dosage: 120 MG, ONCE DAILY (STARTED GILTERITINIB 120MG OM)
     Route: 065
  2. MIDOSTAURIN [Concomitant]
     Active Substance: MIDOSTAURIN
     Indication: NPM1 gene mutation
     Dosage: UNK UNK, UNKNOWN FREQ.
     Route: 065
  3. MIDOSTAURIN [Concomitant]
     Active Substance: MIDOSTAURIN
     Indication: FLT3 gene mutation
  4. CYTARABINE [Concomitant]
     Active Substance: CYTARABINE
     Indication: NPM1 gene mutation
     Dosage: UNK UNK, UNKNOWN FREQ.
     Route: 065
  5. CYTARABINE [Concomitant]
     Active Substance: CYTARABINE
     Indication: FLT3 gene mutation
  6. HYDROXYUREA [Concomitant]
     Active Substance: HYDROXYUREA
     Indication: FLT3 gene mutation
     Dosage: UNK UNK, UNKNOWN FREQ.
     Route: 065

REACTIONS (5)
  - Pyelonephritis [Unknown]
  - Klebsiella infection [Unknown]
  - Neutrophil count abnormal [Unknown]
  - Alanine aminotransferase increased [Unknown]
  - Aspartate aminotransferase increased [Unknown]
